FAERS Safety Report 25936252 (Version 1)
Quarter: 2025Q4

REPORT INFORMATION
  Report Type: Spontaneous
  Country: US (occurrence: US)
  Receive Date: 20251017
  Receipt Date: 20251017
  Transmission Date: 20260117
  Serious: Yes (Other)
  Sender: AMGEN
  Company Number: US-AMGEN-USASP2025203742

PATIENT
  Age: 48 Year
  Sex: Male

DRUGS (5)
  1. PREDNISONE [Suspect]
     Active Substance: PREDNISONE
     Indication: Dermatitis atopic
     Dosage: UNK
     Route: 048
  2. ROFLUMILAST [Concomitant]
     Active Substance: ROFLUMILAST
     Indication: Dermatitis atopic
     Route: 061
  3. DUPILUMAB [Concomitant]
     Active Substance: DUPILUMAB
     Indication: Dermatitis atopic
     Route: 065
  4. UPADACITINIB [Concomitant]
     Active Substance: UPADACITINIB
     Indication: Dermatitis atopic
     Dosage: 15 MILLIGRAM, QD
     Route: 065
  5. TRALOKINUMAB [Concomitant]
     Active Substance: TRALOKINUMAB
     Indication: Dermatitis atopic

REACTIONS (3)
  - Retinal vein occlusion [Unknown]
  - Drug effect less than expected [Unknown]
  - Dermatitis atopic [Recovering/Resolving]
